FAERS Safety Report 6819461-3 (Version None)
Quarter: 2010Q3

REPORT INFORMATION
  Report Type: 
  Country: None (occurrence: None)
  Receive Date: 20100707
  Receipt Date: 20090122
  Transmission Date: 20110219
  Serious: Yes (Hospitalization)
  Sender: FDA-Public Use
  Company Number: US-PFIZER INC-2009159651

PATIENT
  Sex: Male
  Weight: 102 kg

DRUGS (5)
  1. BEXTRA [Suspect]
     Dosage: 20 MG, 1X/DAY
     Dates: start: 20030211, end: 20040401
  2. RELAFEN [Concomitant]
     Dosage: 750 MG, 2X/DAY
  3. DARVOCET [Concomitant]
     Dosage: 650 MG, 2X/DAY
  4. SKELAXIN [Concomitant]
     Dosage: 400 MG, 1X/DAY
  5. ELAVIL [Concomitant]
     Dosage: 50 MG, 1X/DAY

REACTIONS (1)
  - ACUTE MYOCARDIAL INFARCTION [None]
